FAERS Safety Report 8600508-9 (Version None)
Quarter: 2012Q3

REPORT INFORMATION
  Report Type: 
  Country: None (occurrence: None)
  Receive Date: 20120817
  Receipt Date: 20120809
  Transmission Date: 20120928
  Serious: Yes (Other)
  Sender: FDA-Public Use
  Company Number: US-BAYER-2012-082028

PATIENT
  Age: 36 Year
  Sex: Female
  Weight: 119.91 kg

DRUGS (18)
  1. CALCIUM W/VITAMIN D [CALCIUM CARBONATE,COLECALCIFEROL] [Concomitant]
  2. OMEGA-3 FATTY ACIDS [Concomitant]
  3. VITAMIN D [Concomitant]
  4. NAPROXEN [Concomitant]
  5. FLUTICASONE PROPIONATE [Concomitant]
     Route: 045
  6. BUPROPION HCL [Concomitant]
  7. BENZONATATE [Concomitant]
  8. FLOVENT [Concomitant]
     Route: 045
  9. SINGULAIR [Concomitant]
  10. VOLTAREN [Concomitant]
     Dosage: UNK
     Route: 061
  11. PERCOCET [Concomitant]
     Indication: PAIN IN EXTREMITY
  12. ALBUTEROL [Concomitant]
     Dosage: 1 PUFF(S), EVERY 4TO6 HOURS
     Route: 045
  13. OMEPRAZOLE [Concomitant]
     Dosage: 20 MG, UNK
  14. LORATADINE [Concomitant]
  15. ONE-A-DAY [Concomitant]
  16. YASMIN [Suspect]
  17. DROSPIRENONE AND ETHINYL ESTRADIOL [Suspect]
  18. IBUPROFEN [Concomitant]

REACTIONS (1)
  - DEEP VEIN THROMBOSIS [None]
